FAERS Safety Report 18992030 (Version 6)
Quarter: 2022Q1

REPORT INFORMATION
  Report Type: Report from Study
  Country: FR (occurrence: FR)
  Receive Date: 20210310
  Receipt Date: 20220211
  Transmission Date: 20220423
  Serious: Yes (Death, Hospitalization, Other)
  Sender: FDA-Public Use
  Company Number: FR-BRISTOL-MYERS SQUIBB COMPANY-BMS-2021-021939

PATIENT
  Age: 89 Year
  Sex: Male

DRUGS (9)
  1. APIXABAN [Suspect]
     Active Substance: APIXABAN
     Indication: Embolism venous
     Dosage: 5 MG TWICE A DAYOR 2.5 MG TWICE A DAY ACCORDING TO THE RANDOMIZATION GROUP
     Route: 048
     Dates: start: 20200928, end: 20210227
  2. KARDEGIC [Concomitant]
     Active Substance: ASPIRIN DL-LYSINE
     Indication: Product used for unknown indication
     Dosage: 75 MILLIGRAM DAILY
     Route: 048
     Dates: end: 20210227
  3. ATORVASTATIN [Concomitant]
     Active Substance: ATORVASTATIN
     Indication: Blood cholesterol
     Dosage: UNK
     Route: 048
     Dates: end: 20210227
  4. LEUPROLIDE ACETATE [Concomitant]
     Active Substance: LEUPROLIDE ACETATE
     Indication: Product used for unknown indication
     Dosage: 11.25 MILLIGRAM DAILY
     Route: 048
     Dates: start: 20200527, end: 20210227
  5. ACETAMINOPHEN [Concomitant]
     Active Substance: ACETAMINOPHEN
     Indication: Product used for unknown indication
     Dosage: 4 GRAM DAILY
     Route: 048
     Dates: start: 20210108, end: 20210227
  6. CASODEX [Concomitant]
     Active Substance: BICALUTAMIDE
     Indication: Product used for unknown indication
     Dosage: 50 MILLIGRAM DAILY
     Route: 048
     Dates: start: 20210217, end: 20210227
  7. OXYCONTIN [Concomitant]
     Active Substance: OXYCODONE HYDROCHLORIDE
     Indication: Product used for unknown indication
     Dosage: 10 MILLIGRAM DAILY
     Route: 048
     Dates: start: 20210217, end: 20210227
  8. OXYCODONE HYDROCHLORIDE [Concomitant]
     Active Substance: OXYCODONE HYDROCHLORIDE
     Indication: Product used for unknown indication
     Dosage: 5 MILLIGRAM DAILY
     Route: 048
     Dates: start: 20210217, end: 20210227
  9. OXSYNIA [Concomitant]
     Indication: Product used for unknown indication
     Dosage: 10 MILLIGRAM DAILY
     Route: 048
     Dates: start: 20210217, end: 20210227

REACTIONS (2)
  - Acute respiratory failure [Fatal]
  - Upper gastrointestinal haemorrhage [Not Recovered/Not Resolved]

NARRATIVE: CASE EVENT DATE: 20210227
